FAERS Safety Report 5781892-0 (Version None)
Quarter: 2008Q2

REPORT INFORMATION
  Report Type: 
  Country: None (occurrence: None)
  Receive Date: 20080623
  Receipt Date: 20080618
  Transmission Date: 20081010
  Serious: Yes (Other)
  Sender: FDA-Public Use
  Company Number: A0733688A

PATIENT
  Age: 71 Year
  Sex: Female

DRUGS (4)
  1. LAMICTAL [Suspect]
     Dosage: 500MG TWICE PER DAY
     Route: 048
     Dates: start: 20070101
  2. KEPPRA [Concomitant]
  3. ATACAND [Concomitant]
  4. FORTEO [Concomitant]

REACTIONS (8)
  - ALOPECIA [None]
  - CONVULSION [None]
  - ERYTHEMA [None]
  - ILL-DEFINED DISORDER [None]
  - NECK PAIN [None]
  - PRURITUS [None]
  - PRURITUS GENERALISED [None]
  - RASH [None]
